FAERS Safety Report 12548644 (Version 1)
Quarter: 2016Q3

REPORT INFORMATION
  Report Type: Spontaneous
  Country: US (occurrence: US)
  Receive Date: 20160712
  Receipt Date: 20160712
  Transmission Date: 20161109
  Serious: No
  Sender: FDA-Public Use
  Company Number: US-TEVA-584383USA

PATIENT
  Sex: Female
  Weight: 128.48 kg

DRUGS (1)
  1. LAMOTRIGINE. [Suspect]
     Active Substance: LAMOTRIGINE
     Indication: STRESS
     Dosage: 75 MILLIGRAM DAILY;
     Dates: start: 20150326, end: 20150730

REACTIONS (3)
  - Rash generalised [Unknown]
  - Product use issue [Unknown]
  - Blister [Unknown]
